FAERS Safety Report 18891751 (Version 1)
Quarter: 2021Q1

REPORT INFORMATION
  Report Type: Spontaneous
  Country: CO (occurrence: CO)
  Receive Date: 20210215
  Receipt Date: 20210215
  Transmission Date: 20210420
  Serious: Yes (Hospitalization, Other)
  Sender: FDA-Public Use
  Company Number: CO-TILLOMED LABORATORIES LTD.-2020-EPL-002363

PATIENT
  Age: 62 Year
  Sex: Male

DRUGS (8)
  1. CYTARABINE. [Suspect]
     Active Substance: CYTARABINE
     Indication: IMMUNOSUPPRESSANT DRUG THERAPY
     Dosage: CONDITIONING REGIMEN ESHAP REGIMEN AND BEAM
     Dates: start: 2016
  2. CYTARABINE. [Suspect]
     Active Substance: CYTARABINE
     Dosage: 3 CYCLES SALVAGE CHEMOTHERAPY
     Dates: start: 2016, end: 2016
  3. METHYLPREDNISOLONE. [Suspect]
     Active Substance: METHYLPREDNISOLONE
     Indication: IMMUNOSUPPRESSANT DRUG THERAPY
     Dosage: ESHAP REGIMEN 3 CYCLES
     Dates: start: 2016, end: 2016
  4. CISPLATIN. [Suspect]
     Active Substance: CISPLATIN
     Indication: IMMUNOSUPPRESSANT DRUG THERAPY
     Dosage: ESHAP REGIMEN 3 CYCLES
     Dates: start: 2016, end: 2016
  5. BICNU [Suspect]
     Active Substance: CARMUSTINE
     Indication: IMMUNOSUPPRESSANT DRUG THERAPY
     Dosage: BEAM REGIMEN
     Route: 065
     Dates: start: 2016
  6. MELPHALAN. [Suspect]
     Active Substance: MELPHALAN
     Indication: IMMUNOSUPPRESSANT DRUG THERAPY
     Dosage: BEAM REGIMEN
     Dates: start: 2016, end: 2016
  7. ETOPOSIDE. [Suspect]
     Active Substance: ETOPOSIDE
     Indication: IMMUNOSUPPRESSANT DRUG THERAPY
     Dosage: SALVAGE CHEMOTHERAPY ESHAP REGIMEN AND BEAM 3 CYCLES
     Dates: start: 2016
  8. ETOPOSIDE. [Suspect]
     Active Substance: ETOPOSIDE
     Dosage: CONDITIONING REGIMEN ESHAP REGIMEN AND BEAM
     Dates: start: 2016, end: 2016

REACTIONS (3)
  - Pleural effusion [Unknown]
  - American trypanosomiasis [Recovered/Resolved]
  - Infection reactivation [Recovered/Resolved]

NARRATIVE: CASE EVENT DATE: 20160606
